FAERS Safety Report 16108299 (Version 1)
Quarter: 2019Q1

REPORT INFORMATION
  Report Type: Spontaneous
  Country: DE (occurrence: DE)
  Receive Date: 20190322
  Receipt Date: 20190322
  Transmission Date: 20190418
  Serious: Yes (Other)
  Sender: FDA-Public Use
  Company Number: PHHY2019DE061967

PATIENT
  Sex: Female

DRUGS (5)
  1. DOXYHEXAL [Suspect]
     Active Substance: DOXYCYCLINE
     Indication: EYE INFLAMMATION
  2. CLOPIDOGREL HEUMANN [Suspect]
     Active Substance: CLOPIDOGREL BISULFATE
     Indication: MYOCARDIAL INFARCTION
     Dosage: UNK
     Route: 065
  3. DOXYHEXAL [Suspect]
     Active Substance: DOXYCYCLINE
     Indication: SKIN EXFOLIATION
  4. DOXYHEXAL [Suspect]
     Active Substance: DOXYCYCLINE
     Indication: OCULAR HYPERAEMIA
     Dosage: UNK
     Route: 065
  5. ASPIRIN. [Suspect]
     Active Substance: ASPIRIN
     Indication: MYOCARDIAL INFARCTION
     Dosage: UNK
     Route: 065

REACTIONS (7)
  - Genital haemorrhage [Unknown]
  - Blood pressure increased [Unknown]
  - Haemoptysis [Unknown]
  - Acne [Unknown]
  - Haematotympanum [Unknown]
  - Dysgeusia [Unknown]
  - Cough [Unknown]
